FAERS Safety Report 23669098 (Version 1)
Quarter: 2024Q1

REPORT INFORMATION
  Report Type: Spontaneous
  Country: CA (occurrence: CA)
  Receive Date: 20240325
  Receipt Date: 20240325
  Transmission Date: 20240410
  Serious: Yes (Other)
  Sender: FDA-Public Use
  Company Number: CA-STRIDES ARCOLAB LIMITED-2024SP003418

PATIENT
  Age: 6 Month
  Sex: Male

DRUGS (8)
  1. CALCITRIOL [Suspect]
     Active Substance: CALCITRIOL
     Indication: Hypocalcaemia
     Dosage: 0.2 MICROGRAM PER DAY
     Route: 042
  2. CALCITRIOL [Suspect]
     Active Substance: CALCITRIOL
     Dosage: 1.8 MICROGRAM PER DAY
     Route: 048
  3. CALCIUM [Suspect]
     Active Substance: CALCIUM
     Indication: Hypocalcaemia
     Dosage: UNK (IV BOLUSES OF CALCIUM DAILY)
     Route: 040
  4. CALCIUM [Suspect]
     Active Substance: CALCIUM
     Dosage: 2000 MILLIGRAM PER DAY (OF THIS 2000MG, 1400MG AS CALCIUM SUPPLEMENTS)
     Route: 048
  5. CALCIUM [Suspect]
     Active Substance: CALCIUM
     Dosage: 2000 MILLIGRAM PER DAY (SWITCHED THE ENTIRE DOSE TO CALCIUM SUPPLEMENTATION)
     Route: 048
  6. CALCIUM [Suspect]
     Active Substance: CALCIUM
     Dosage: UNK (CALCIUM IN THE DIALYSATE 2 MMOL/L)
     Route: 065
  7. MAGNESIUM [Suspect]
     Active Substance: MAGNESIUM
     Indication: Hypocalcaemia
     Dosage: UNK (IV BOLUSES OF MAGNESIUM DAILY)
     Route: 040
  8. MAGNESIUM [Suspect]
     Active Substance: MAGNESIUM
     Dosage: 9 MILLIGRAM/KILOGRAM PER DAY
     Route: 048

REACTIONS (1)
  - Drug ineffective [Unknown]
